FAERS Safety Report 4894022-4 (Version None)
Quarter: 2006Q1

REPORT INFORMATION
  Report Type: 
  Country: None (occurrence: None)
  Receive Date: 20060127
  Receipt Date: 20050504
  Transmission Date: 20060701
  Serious: No
  Sender: FDA-Public Use
  Company Number: US-GLAXOSMITHKLINE-A0557285A

PATIENT
  Age: 53 Year
  Sex: Female

DRUGS (3)
  1. WELLBUTRIN [Suspect]
     Indication: DEPRESSION
     Dosage: 75MG PER DAY
     Route: 048
  2. PROGESTERONE [Concomitant]
  3. CENESTIN [Concomitant]

REACTIONS (3)
  - DYSGEUSIA [None]
  - MENTAL IMPAIRMENT [None]
  - MYDRIASIS [None]
